FAERS Safety Report 6900796-0 (Version None)
Quarter: 2010Q3

REPORT INFORMATION
  Report Type: 
  Country: None (occurrence: None)
  Receive Date: 20100730
  Receipt Date: 20100720
  Transmission Date: 20110219
  Serious: Yes (Hospitalization)
  Sender: FDA-Public Use
  Company Number: 2010MA001058

PATIENT
  Age: 72 Year
  Sex: Female

DRUGS (10)
  1. RAMIPRIL [Suspect]
     Indication: GLOMERULAR FILTRATION RATE DECREASED
     Dosage: 2.5 MG;PO
     Route: 048
     Dates: start: 20100315, end: 20100325
  2. SIMVASTATIN [Concomitant]
  3. MIRTAZAPINE [Concomitant]
  4. ACETAMINOPHEN AND CODEINE PHOSPHATE [Concomitant]
  5. LEVOTHYROXINE SODIUM [Concomitant]
  6. INSULIN GLARGINE [Concomitant]
  7. LANSOPRAZOLE [Concomitant]
  8. NOVORAPID [Concomitant]
  9. SENNA [Concomitant]
  10. ACE INHIBITOR [Concomitant]

REACTIONS (2)
  - GLOMERULAR FILTRATION RATE DECREASED [None]
  - LIVER FUNCTION TEST ABNORMAL [None]
